FAERS Safety Report 5242608-X (Version None)
Quarter: 2007Q1

REPORT INFORMATION
  Report Type: 
  Country: None (occurrence: None)
  Receive Date: 20070214
  Receipt Date: 20070201
  Transmission Date: 20070707
  Serious: Yes (Other)
  Sender: FDA-Public Use
  Company Number: 2007SP002180

PATIENT
  Age: 61 Year
  Sex: Male

DRUGS (2)
  1. PEG-INTRON [Suspect]
     Indication: DRUG USE FOR UNKNOWN INDICATION
  2. REBETOL [Suspect]
     Indication: DRUG USE FOR UNKNOWN INDICATION
     Dosage: PO
     Route: 048

REACTIONS (1)
  - POLYCYTHAEMIA VERA [None]
